FAERS Safety Report 4925593-7 (Version None)
Quarter: 2006Q1

REPORT INFORMATION
  Report Type: 
  Country: None (occurrence: None)
  Receive Date: 20060228
  Receipt Date: 20050104
  Transmission Date: 20060701
  Serious: No
  Sender: FDA-Public Use
  Company Number: US-GLAXOSMITHKLINE-A0539323A

PATIENT
  Age: 30 Year
  Sex: Male
  Weight: 92.7 kg

DRUGS (5)
  1. LAMICTAL [Suspect]
     Indication: BIPOLAR DISORDER
     Dosage: 150MG PER DAY
     Route: 048
     Dates: start: 20041001, end: 20050109
  2. ZOLOFT [Concomitant]
     Indication: DEPRESSION
     Dosage: 25MG IN THE MORNING
     Route: 048
     Dates: start: 20040101, end: 20040103
  3. RISPERDAL [Concomitant]
     Indication: BIPOLAR DISORDER
     Dosage: 3MG AT NIGHT
     Route: 048
     Dates: start: 20040101
  4. KLONOPIN [Concomitant]
     Indication: ANXIETY
     Dosage: 3MG AT NIGHT
     Route: 048
     Dates: start: 20040101, end: 20041223
  5. SEROQUEL [Concomitant]
     Indication: ANXIETY
     Dosage: 150MG PER DAY
     Route: 048
     Dates: start: 20041231

REACTIONS (2)
  - BLOOD CREATINE PHOSPHOKINASE INCREASED [None]
  - MUSCULAR WEAKNESS [None]
